FAERS Safety Report 5355338-0 (Version None)
Quarter: 2007Q2

REPORT INFORMATION
  Report Type: 
  Country: None (occurrence: None)
  Receive Date: 20070604
  Receipt Date: 20060518
  Transmission Date: 20071010
  Serious: Yes (Other)
  Sender: FDA-Public Use
  Company Number: 8011978

PATIENT
  Age: 7 Year
  Sex: Male

DRUGS (1)
  1. METADATE CD [Suspect]
     Dosage: PO
     Route: 048
     Dates: end: 20050826

REACTIONS (1)
  - ARRHYTHMIA [None]
